FAERS Safety Report 17097230 (Version 1)
Quarter: 2019Q4

REPORT INFORMATION
  Report Type: Spontaneous
  Country: US (occurrence: US)
  Receive Date: 20191129
  Receipt Date: 20191129
  Transmission Date: 20200122
  Serious: No
  Sender: FDA-Public Use
  Company Number: None

PATIENT
  Sex: Male

DRUGS (2)
  1. NEXAVAR [Concomitant]
     Active Substance: SORAFENIB
  2. PROLEUKIN [Suspect]
     Active Substance: ALDESLEUKIN
     Indication: RENAL CANCER

REACTIONS (3)
  - Product prescribing issue [None]
  - Circumstance or information capable of leading to medication error [None]
  - Multiple use of single-use product [None]
